FAERS Safety Report 13886917 (Version 3)
Quarter: 2017Q4

REPORT INFORMATION
  Report Type: Spontaneous
  Country: TW (occurrence: TW)
  Receive Date: 20170821
  Receipt Date: 20171221
  Transmission Date: 20180320
  Serious: Yes (Life-Threatening, Hospitalization, Other)
  Sender: FDA-Public Use
  Company Number: PHHY2017TW122652

PATIENT
  Age: 34 Year
  Sex: Male

DRUGS (2)
  1. COSENTYX [Suspect]
     Active Substance: SECUKINUMAB
     Dosage: 150 MG, QMO
     Route: 058
     Dates: start: 20170817
  2. COSENTYX [Suspect]
     Active Substance: SECUKINUMAB
     Indication: PSORIASIS
     Dosage: 1 DF, QMO
     Route: 058

REACTIONS (5)
  - Brain hypoxia [Unknown]
  - Bradyphagia [Unknown]
  - Inappropriate schedule of drug administration [Unknown]
  - Pneumonia [Recovering/Resolving]
  - Influenza [Recovering/Resolving]

NARRATIVE: CASE EVENT DATE: 20170726
